FAERS Safety Report 5938352-3 (Version None)
Quarter: 2008Q4

REPORT INFORMATION
  Report Type: 
  Country: None (occurrence: None)
  Receive Date: 20081103
  Receipt Date: 20081020
  Transmission Date: 20090506
  Serious: Yes (Other)
  Sender: FDA-Public Use
  Company Number: JP-BRISTOL-MYERS SQUIBB COMPANY-14385561

PATIENT
  Age: 34 Year
  Sex: Female

DRUGS (2)
  1. ABILIFY [Suspect]
     Dosage: 13MAY08 6MG TABLET A DAY 15-18MAY08 6MG TABLETS 2/DAY 19MAY08 THREE TABLETS OF 6 MG ARIPIPRAZOLE
     Route: 048
     Dates: start: 20080513
  2. ZOLOFT [Concomitant]

REACTIONS (2)
  - PREGNANCY [None]
  - PREMATURE LABOUR [None]
